FAERS Safety Report 5729788-4 (Version None)
Quarter: 2008Q2

REPORT INFORMATION
  Report Type: 
  Country: None (occurrence: None)
  Receive Date: 20080506
  Receipt Date: 20080331
  Transmission Date: 20081010
  Serious: Yes (Hospitalization)
  Sender: FDA-Public Use
  Company Number: US-GENENTECH-260530

PATIENT
  Sex: Male
  Weight: 67.7 kg

DRUGS (4)
  1. BEVACIZUMAB [Suspect]
     Dosage: 15 MG/KG, Q21D
     Route: 042
     Dates: start: 20080122
  2. CETUXIMAB [Suspect]
     Dosage: 400 MG/M2, SINGLE
     Route: 042
     Dates: start: 20080122
  3. CETUXIMAB [Suspect]
     Dosage: 250 MG/M2, UNK
     Route: 042
  4. CETUXIMAB [Suspect]
     Dosage: 250 MG/M2, DAYS1,8,15
     Route: 042

REACTIONS (4)
  - DEHYDRATION [None]
  - DYSPHAGIA [None]
  - FATIGUE [None]
  - WEIGHT DECREASED [None]
